FAERS Safety Report 8474082-4 (Version None)
Quarter: 2012Q2

REPORT INFORMATION
  Report Type: 
  Country: None (occurrence: None)
  Receive Date: 20120628
  Receipt Date: 20111025
  Transmission Date: 20120825
  Serious: Yes (Other)
  Sender: FDA-Public Use
  Company Number: US-MYLANLABS-2011S1008329

PATIENT
  Age: 42 Year
  Sex: Male

DRUGS (6)
  1. WELLBUTRIN [Concomitant]
  2. CLONAZEPAM [Concomitant]
  3. ABILIFY [Concomitant]
  4. CLINDAMYCIN [Concomitant]
     Dates: end: 20110801
  5. CLOZAPINE [Suspect]
     Indication: SCHIZOAFFECTIVE DISORDER
     Dates: end: 20110819
  6. FENTANYL-100 [Concomitant]

REACTIONS (2)
  - WHITE BLOOD CELL COUNT DECREASED [None]
  - GRANULOCYTOPENIA [None]
